FAERS Safety Report 4835399-5 (Version None)
Quarter: 2005Q4

REPORT INFORMATION
  Report Type: 
  Country: None (occurrence: None)
  Receive Date: 20051118
  Receipt Date: 20051107
  Transmission Date: 20060501
  Serious: No
  Sender: FDA-Public Use
  Company Number: 2005BI018302

PATIENT
  Age: 58 Year
  Sex: Female

DRUGS (19)
  1. AVONEX [Suspect]
     Indication: MULTIPLE SCLEROSIS
     Dosage: 30 UG;QW;IM
     Route: 030
     Dates: start: 20030723
  2. ALLEGRA [Concomitant]
  3. ZOLOFT [Concomitant]
  4. NEURONTIN [Concomitant]
  5. LEVOXYL [Concomitant]
  6. ZOCOR [Concomitant]
  7. ASPIRIN [Concomitant]
  8. UNIRETIC [Concomitant]
  9. PREMARIN [Concomitant]
  10. ASCORBIC ACID [Concomitant]
  11. VITAMIN E [Concomitant]
  12. VITAMIN B-12 [Concomitant]
  13. VITAMIN B6 [Concomitant]
  14. CALTRATE [Concomitant]
  15. FOLIC ACID [Concomitant]
  16. CENTRUM MULTIVITAMIN [Concomitant]
  17. FISH OIL [Concomitant]
  18. FLAX OIL [Concomitant]
  19. OIL (NOS) [Concomitant]

REACTIONS (1)
  - MULTIPLE SCLEROSIS [None]
